FAERS Safety Report 23555073 (Version 1)
Quarter: 2024Q1

REPORT INFORMATION
  Report Type: Spontaneous
  Country: FR (occurrence: FR)
  Receive Date: 20240222
  Receipt Date: 20240222
  Transmission Date: 20240409
  Serious: Yes (Hospitalization)
  Sender: FDA-Public Use
  Company Number: None

PATIENT
  Age: 59 Year
  Sex: Female
  Weight: 50 kg

DRUGS (1)
  1. TALTZ [Suspect]
     Active Substance: IXEKIZUMAB
     Indication: Axial spondyloarthritis
     Dosage: 80 MG, MONTHLY (1/M)
     Route: 058
     Dates: start: 20231213, end: 20231213

REACTIONS (6)
  - Hyperaesthesia [Recovering/Resolving]
  - Motor dysfunction [Recovering/Resolving]
  - Pain in jaw [Recovering/Resolving]
  - Diplopia [Recovering/Resolving]
  - Arthralgia [Recovering/Resolving]
  - Injection site reaction [Recovering/Resolving]

NARRATIVE: CASE EVENT DATE: 20231213
